FAERS Safety Report 16772278 (Version 1)
Quarter: 2019Q3

REPORT INFORMATION
  Report Type: Report from Study
  Country: US (occurrence: US)
  Receive Date: 20190904
  Receipt Date: 20190904
  Transmission Date: 20191005
  Serious: No
  Sender: FDA-Public Use
  Company Number: US-EMD SERONO-9096806

PATIENT
  Age: 37 Year
  Sex: Female

DRUGS (3)
  1. ESGIC [Concomitant]
     Active Substance: ACETAMINOPHEN\BUTALBITAL\CAFFEINE
     Indication: MIGRAINE
  2. MAVENCLAD [Suspect]
     Active Substance: CLADRIBINE
     Indication: MULTIPLE SCLEROSIS
     Dosage: THERAPY SCHEDULED WITH A DOSAGE OF 20 MG ON DAYS 1 TO 4 AND 10 MG ON DAY 5 (CUMULATIVE DOSE WAS 90 M
     Route: 048
     Dates: start: 20190531
  3. RELPAX [Concomitant]
     Active Substance: ELETRIPTAN HYDROBROMIDE
     Indication: MIGRAINE

REACTIONS (8)
  - Nodule [Unknown]
  - Mood altered [Recovering/Resolving]
  - Headache [Unknown]
  - Sinus congestion [Unknown]
  - Initial insomnia [Unknown]
  - Respiratory tract congestion [Unknown]
  - Asthenia [Recovering/Resolving]
  - Throat irritation [Unknown]

NARRATIVE: CASE EVENT DATE: 201906
